FAERS Safety Report 22595209 (Version 1)
Quarter: 2023Q2

REPORT INFORMATION
  Report Type: Spontaneous
  Country: US (occurrence: US)
  Receive Date: 20230613
  Receipt Date: 20230613
  Transmission Date: 20230721
  Serious: No
  Sender: FDA-Public Use
  Company Number: US-BIOVITRUM-2023-US-011702

PATIENT
  Age: 32 Year
  Sex: Female

DRUGS (1)
  1. ANAKINRA [Suspect]
     Active Substance: ANAKINRA
     Indication: Cryopyrin associated periodic syndrome

REACTIONS (3)
  - Off label use [Unknown]
  - Injection site urticaria [Unknown]
  - Eosinophilic cellulitis [Unknown]
